FAERS Safety Report 12749661 (Version 2)
Quarter: 2016Q3

REPORT INFORMATION
  Report Type: Spontaneous
  Country: CH (occurrence: CH)
  Receive Date: 20160916
  Receipt Date: 20160920
  Transmission Date: 20161109
  Serious: Yes (Hospitalization)
  Sender: FDA-Public Use
  Company Number: CH-ROCHE-1831068

PATIENT
  Age: 76 Year
  Sex: Male
  Weight: 64 kg

DRUGS (18)
  1. ZELBORAF [Suspect]
     Active Substance: VEMURAFENIB
     Indication: LEUKOCYTURIA
     Route: 048
     Dates: start: 20160817, end: 20160830
  2. CRESTOR [Concomitant]
     Active Substance: ROSUVASTATIN CALCIUM
     Route: 065
     Dates: end: 20160904
  3. RASILEZ HCT [Suspect]
     Active Substance: ALISKIREN\HYDROCHLOROTHIAZIDE
     Indication: PRODUCT USED FOR UNKNOWN INDICATION
     Route: 065
     Dates: end: 20160904
  4. PHYSIOTENS [Concomitant]
     Active Substance: MOXONIDINE
     Dosage: PHYSIOTENS MITE
     Route: 065
     Dates: end: 20160904
  5. AMLODIPIN [Concomitant]
     Active Substance: AMLODIPINE BESYLATE
     Route: 065
     Dates: end: 20160904
  6. JANUVIA [Concomitant]
     Active Substance: SITAGLIPTIN PHOSPHATE
     Route: 065
     Dates: end: 201609
  7. PRADIF [Concomitant]
     Active Substance: TAMSULOSIN HYDROCHLORIDE
     Dosage: PRADIF T
     Route: 065
     Dates: start: 20160823, end: 20160827
  8. TARGIN [Concomitant]
     Active Substance: NALOXONE HYDROCHLORIDE\OXYCODONE HYDROCHLORIDE
     Route: 065
     Dates: start: 20160816, end: 20160904
  9. AUGMENTIN [Concomitant]
     Active Substance: AMOXICILLIN\CLAVULANATE POTASSIUM
     Route: 065
     Dates: start: 20160816, end: 20160817
  10. ASPIRIN. [Suspect]
     Active Substance: ASPIRIN
     Indication: PRODUCT USED FOR UNKNOWN INDICATION
     Route: 065
  11. NEBIVOLOL. [Concomitant]
     Active Substance: NEBIVOLOL
     Route: 065
  12. KEYTRUDA [Suspect]
     Active Substance: PEMBROLIZUMAB
     Indication: PRODUCT USED FOR UNKNOWN INDICATION
     Route: 041
     Dates: start: 20160810
  13. PANTOPRAZOL [Suspect]
     Active Substance: PANTOPRAZOLE SODIUM
     Indication: PRODUCT USED FOR UNKNOWN INDICATION
     Dosage: PANTOPRAZOL AXAPHARM
     Route: 048
     Dates: end: 20160904
  14. EZETROL [Concomitant]
     Active Substance: EZETIMIBE
     Route: 065
     Dates: end: 20160904
  15. FRAGMIN [Concomitant]
     Active Substance: DALTEPARIN SODIUM
     Route: 065
     Dates: start: 20160816, end: 20160827
  16. TEMESTA (SWITZERLAND) [Concomitant]
     Active Substance: LORAZEPAM
     Route: 065
     Dates: start: 20160816
  17. ROCEPHIN [Concomitant]
     Active Substance: CEFTRIAXONE SODIUM
     Route: 042
     Dates: start: 20160817, end: 20160821
  18. ZYLORIC [Concomitant]
     Active Substance: ALLOPURINOL
     Route: 065
     Dates: start: 20160819, end: 20160827

REACTIONS (2)
  - Renal tubular disorder [Not Recovered/Not Resolved]
  - Acute kidney injury [Not Recovered/Not Resolved]

NARRATIVE: CASE EVENT DATE: 20160824
